FAERS Safety Report 17318566 (Version 2)
Quarter: 2020Q2

REPORT INFORMATION
  Report Type: Spontaneous
  Country: US (occurrence: US)
  Receive Date: 20200124
  Receipt Date: 20200414
  Transmission Date: 20200713
  Serious: Yes (Hospitalization, Other)
  Sender: FDA-Public Use
  Company Number: US-BAYER-2020-012259

PATIENT
  Age: 73 Year
  Sex: Female
  Weight: 70.31 kg

DRUGS (4)
  1. XELJANZ [Concomitant]
     Active Substance: TOFACITINIB CITRATE
     Dosage: 5 MG
     Route: 048
  2. TYLENOL [Concomitant]
     Active Substance: ACETAMINOPHEN
  3. BAYER LOW DOSE [Suspect]
     Active Substance: ASPIRIN
     Indication: MUSCLE SPASMS
     Dosage: UNK
     Dates: start: 201912
  4. BAYER LOW DOSE [Suspect]
     Active Substance: ASPIRIN
     Indication: HYPERCOAGULATION

REACTIONS (6)
  - Ulcer haemorrhage [None]
  - Hypotension [Unknown]
  - Helicobacter gastritis [None]
  - Gastrointestinal ulcer [Unknown]
  - Haematochezia [Unknown]
  - Product use in unapproved indication [None]

NARRATIVE: CASE EVENT DATE: 20200111
